FAERS Safety Report 9735800 (Version 1)
Quarter: 2013Q4

REPORT INFORMATION
  Report Type: Spontaneous
  Country: US (occurrence: US)
  Receive Date: 20131206
  Receipt Date: 20131206
  Transmission Date: 20140711
  Serious: No
  Sender: FDA-Public Use
  Company Number: US-GILEAD-2009-0023167

PATIENT
  Sex: Female
  Weight: 48.53 kg

DRUGS (11)
  1. LETAIRIS [Suspect]
     Indication: PULMONARY ARTERIAL HYPERTENSION
     Route: 048
     Dates: start: 20090612
  2. CARVEDILOL [Concomitant]
  3. AMLODIPINE BESYLATE [Concomitant]
  4. RAMIPRIL [Concomitant]
  5. DEPEN [Concomitant]
  6. SYNTHROID [Concomitant]
  7. ACIPHEX [Concomitant]
  8. COLCHICINE [Concomitant]
  9. ASPIRIN [Concomitant]
  10. CENTRUM [Concomitant]
  11. ENSURE LIQUID [Concomitant]

REACTIONS (3)
  - Pain in extremity [Unknown]
  - Local swelling [Unknown]
  - Sinus disorder [Unknown]
